FAERS Safety Report 12060905 (Version 2)
Quarter: 2016Q1

REPORT INFORMATION
  Report Type: Spontaneous
  Country: NL (occurrence: NL)
  Receive Date: 20160210
  Receipt Date: 20160218
  Transmission Date: 20160526
  Serious: Yes (Death, Hospitalization)
  Sender: FDA-Public Use
  Company Number: NL-JNJFOC-20160208426

PATIENT
  Age: 89 Year
  Sex: Female

DRUGS (5)
  1. FLUIMUCIL [Concomitant]
     Active Substance: ACETYLCYSTEINE
     Indication: PRODUCT USED FOR UNKNOWN INDICATION
     Route: 048
  2. TEMAZEPAM. [Concomitant]
     Active Substance: TEMAZEPAM
     Indication: PRODUCT USED FOR UNKNOWN INDICATION
     Route: 048
     Dates: start: 2012
  3. ZALDIAR [Suspect]
     Active Substance: ACETAMINOPHEN\TRAMADOL HYDROCHLORIDE
     Indication: BACK PAIN
     Route: 048
     Dates: start: 20160102, end: 20160103
  4. OMEPRAZOLE. [Concomitant]
     Active Substance: OMEPRAZOLE
     Indication: PRODUCT USED FOR UNKNOWN INDICATION
     Route: 048
  5. SALMETEROL/FLUTICASONPROPIONAAT [Concomitant]
     Active Substance: SALMETEROL
     Indication: PRODUCT USED FOR UNKNOWN INDICATION
     Route: 055
     Dates: start: 201506

REACTIONS (7)
  - Mutism [Recovering/Resolving]
  - Nausea [Recovering/Resolving]
  - Vomiting [Recovering/Resolving]
  - Respiratory failure [Recovering/Resolving]
  - Depressed level of consciousness [Recovering/Resolving]
  - Dyspnoea [Recovering/Resolving]
  - Somnolence [Recovering/Resolving]

NARRATIVE: CASE EVENT DATE: 20160103
